FAERS Safety Report 7517121-7 (Version None)
Quarter: 2011Q2

REPORT INFORMATION
  Report Type: 
  Country: None (occurrence: None)
  Receive Date: 20110526
  Receipt Date: 20110526
  Transmission Date: 20111010
  Serious: Yes (Hospitalization, Other)
  Sender: FDA-Public Use
  Company Number: None

PATIENT
  Age: 25 Year
  Sex: Male
  Weight: 94.8018 kg

DRUGS (1)
  1. TYLENOL (CAPLET) [Suspect]
     Dates: start: 20100208, end: 20110404

REACTIONS (3)
  - PYREXIA [None]
  - HEADACHE [None]
  - RASH [None]
